FAERS Safety Report 10608889 (Version 2)
Quarter: 2014Q4

REPORT INFORMATION
  Report Type: Spontaneous
  Country: US (occurrence: US)
  Receive Date: 20141125
  Receipt Date: 20141230
  Transmission Date: 20150529
  Serious: Yes (Hospitalization, Other)
  Sender: FDA-Public Use
  Company Number: US-CELGENE-USA-2014113530

PATIENT
  Sex: Female
  Weight: 58.11 kg

DRUGS (2)
  1. TEMAZEPAM. [Concomitant]
     Active Substance: TEMAZEPAM
     Indication: INSOMNIA
     Route: 065
  2. REVLIMID [Suspect]
     Active Substance: LENALIDOMIDE
     Indication: AMYLOIDOSIS
     Dosage: 10 MILLIGRAM
     Route: 048
     Dates: start: 20141004

REACTIONS (5)
  - Swelling face [Unknown]
  - Rash [Unknown]
  - Hypersomnia [Unknown]
  - Renal failure [Unknown]
  - Swollen tongue [Unknown]

NARRATIVE: CASE EVENT DATE: 2014
